FAERS Safety Report 6128744-4 (Version None)
Quarter: 2009Q1

REPORT INFORMATION
  Report Type: 
  Country: None (occurrence: None)
  Receive Date: 20090319
  Receipt Date: 20081027
  Transmission Date: 20090719
  Serious: Yes (Death, Hospitalization)
  Sender: FDA-Public Use
  Company Number: 2009EU001011

PATIENT
  Age: 52 Year
  Sex: Female

DRUGS (3)
  1. TACROLIMUS [Suspect]
     Dosage: 0.018 UG/ML/D,
     Dates: start: 20071201
  2. MYCOPHENOLATE MOFETIL [Suspect]
     Indication: LUNG TRANSPLANT
     Dates: start: 20071201
  3. PREDNISONE TAB [Concomitant]

REACTIONS (14)
  - ACUTE GRAFT VERSUS HOST DISEASE IN INTESTINE [None]
  - ACUTE GRAFT VERSUS HOST DISEASE IN LIVER [None]
  - AMMONIA INCREASED [None]
  - BONE MARROW FAILURE [None]
  - BONE MARROW TOXICITY [None]
  - BRAIN OEDEMA [None]
  - CARDIOVASCULAR DISORDER [None]
  - CEREBRAL MICROANGIOPATHY [None]
  - CONVULSION [None]
  - DRUG ERUPTION [None]
  - GASTROINTESTINAL HAEMORRHAGE [None]
  - GRAFT VERSUS HOST DISEASE [None]
  - MULTI-ORGAN FAILURE [None]
  - PYREXIA [None]
